FAERS Safety Report 22191416 (Version 1)
Quarter: 2023Q2

REPORT INFORMATION
  Report Type: Spontaneous
  Country: US (occurrence: US)
  Receive Date: 20230410
  Receipt Date: 20230410
  Transmission Date: 20230722
  Serious: No
  Sender: FDA-Public Use
  Company Number: US-009507513-2304USA001526

PATIENT
  Age: 71 Year
  Sex: Female

DRUGS (1)
  1. KEYTRUDA [Suspect]
     Active Substance: PEMBROLIZUMAB
     Indication: Renal cell carcinoma
     Dosage: 200MG/EVERY 21 DAYS

REACTIONS (3)
  - Product dose omission issue [Unknown]
  - Economic problem [Unknown]
  - No adverse event [Unknown]

NARRATIVE: CASE EVENT DATE: 20230322
